FAERS Safety Report 7726192-4 (Version None)
Quarter: 2011Q3

REPORT INFORMATION
  Report Type: 
  Country: None (occurrence: None)
  Receive Date: 20110902
  Receipt Date: 20110826
  Transmission Date: 20111222
  Serious: Yes (Other)
  Sender: FDA-Public Use
  Company Number: US-ACTELION-A-US2011-52934

PATIENT

DRUGS (2)
  1. TRACLEER [Suspect]
     Indication: PULMONARY ARTERIAL HYPERTENSION
     Dosage: UNK
     Route: 048
     Dates: start: 20110520
  2. LASIX [Suspect]

REACTIONS (4)
  - HYPOKALAEMIA [None]
  - OEDEMA PERIPHERAL [None]
  - HYPOTENSION [None]
  - DIZZINESS [None]
